FAERS Safety Report 24621989 (Version 2)
Quarter: 2025Q3

REPORT INFORMATION
  Report Type: Report from Study
  Country: BR (occurrence: BR)
  Receive Date: 20241114
  Receipt Date: 20250810
  Transmission Date: 20251021
  Serious: Yes (Hospitalization, Other)
  Sender: ALEXION PHARMACEUTICALS
  Company Number: BR-AstraZeneca-CH-00743184A

PATIENT
  Sex: Male

DRUGS (3)
  1. BENRALIZUMAB [Suspect]
     Active Substance: BENRALIZUMAB
     Indication: Asthma
  2. BENRALIZUMAB [Suspect]
     Active Substance: BENRALIZUMAB
  3. OXYGEN [Concomitant]
     Active Substance: OXYGEN

REACTIONS (7)
  - Cardiac failure [Unknown]
  - Cataract [Unknown]
  - Endotracheal intubation [Unknown]
  - Nightmare [Unknown]
  - Lung disorder [Unknown]
  - Fatigue [Unknown]
  - Dyspnoea [Unknown]
